FAERS Safety Report 17880641 (Version 1)
Quarter: 2020Q2

REPORT INFORMATION
  Report Type: Spontaneous
  Country: US (occurrence: US)
  Receive Date: 20200610
  Receipt Date: 20200610
  Transmission Date: 20200714
  Serious: No
  Sender: FDA-Public Use
  Company Number: None

PATIENT
  Age: 47 Year
  Sex: Female
  Weight: 95.4 kg

DRUGS (7)
  1. CREON [Concomitant]
     Active Substance: PANCRELIPASE AMYLASE\PANCRELIPASE LIPASE\PANCRELIPASE PROTEASE
     Dates: start: 20000420
  2. MINOCYCLINE [Concomitant]
     Active Substance: MINOCYCLINE HYDROCHLORIDE
     Dates: start: 20200528
  3. LANSOPRAZOLE DR 30MG CAPSULE [Concomitant]
     Dates: start: 20180816
  4. TOBRAMYCIN 300MG/5ML INHALATION [Concomitant]
     Dates: start: 20200528
  5. TRIKAFTA [Suspect]
     Active Substance: ELEXACAFTOR\IVACAFTOR\TEZACAFTOR
     Indication: CYSTIC FIBROSIS
     Route: 048
     Dates: start: 20191118, end: 20200430
  6. HYDROCHLOROTHIAZIDE 25MG TABLET [Concomitant]
     Dates: start: 20200605
  7. TUMS 500MG [Concomitant]
     Dates: start: 20180420

REACTIONS (2)
  - Liver function test increased [None]
  - Oedema peripheral [None]

NARRATIVE: CASE EVENT DATE: 20200608
